FAERS Safety Report 6041397-9 (Version None)
Quarter: 2009Q1

REPORT INFORMATION
  Report Type: 
  Country: None (occurrence: None)
  Receive Date: 20090116
  Receipt Date: 20081009
  Transmission Date: 20090719
  Serious: No
  Sender: FDA-Public Use
  Company Number: US-BRISTOL-MYERS SQUIBB COMPANY-14365316

PATIENT
  Age: 55 Year
  Sex: Female

DRUGS (3)
  1. ABILIFY [Suspect]
  2. SEROQUEL [Concomitant]
  3. AMBIEN CR [Concomitant]

REACTIONS (1)
  - AKATHISIA [None]
